FAERS Safety Report 8240156-6 (Version None)
Quarter: 2012Q1

REPORT INFORMATION
  Report Type: 
  Country: None (occurrence: None)
  Receive Date: 20120328
  Receipt Date: 20120323
  Transmission Date: 20120608
  Serious: Yes (Other)
  Sender: FDA-Public Use
  Company Number: IE-PFIZER INC-2012077853

PATIENT
  Age: 39 Year
  Sex: Male

DRUGS (2)
  1. VARENICLINE TARTRATE [Suspect]
     Indication: SMOKING CESSATION THERAPY
     Dosage: UNK
     Dates: start: 20120302, end: 20120303
  2. ARCOXIA [Concomitant]
     Indication: PAIN
     Dosage: 90 MG, UNK
     Dates: start: 20120302, end: 20120303

REACTIONS (7)
  - NAUSEA [None]
  - HEADACHE [None]
  - VOMITING [None]
  - AFFECTIVE DISORDER [None]
  - DYSGEUSIA [None]
  - TONGUE DRY [None]
  - DISORIENTATION [None]
